FAERS Safety Report 7336100-6 (Version None)
Quarter: 2011Q1

REPORT INFORMATION
  Report Type: 
  Country: None (occurrence: None)
  Receive Date: 20110307
  Receipt Date: 20110222
  Transmission Date: 20110831
  Serious: Yes (Other)
  Sender: FDA-Public Use
  Company Number: US-CELGENEUS-163-21880-11023254

PATIENT
  Sex: Female

DRUGS (4)
  1. ACYCLOVIR [Concomitant]
     Route: 065
  2. TRAMADOL HCL [Concomitant]
     Route: 065
  3. GLUCOSAMINE [Concomitant]
     Route: 065
  4. REVLIMID [Suspect]
     Dosage: 10 MILLIGRAM
     Route: 048
     Dates: start: 20101004

REACTIONS (1)
  - VIITH NERVE PARALYSIS [None]
